FAERS Safety Report 5737633-6 (Version None)
Quarter: 2008Q2

REPORT INFORMATION
  Report Type: 
  Country: None (occurrence: None)
  Receive Date: 20080507
  Receipt Date: 20070502
  Transmission Date: 20081010
  Serious: Yes (Hospitalization)
  Sender: FDA-Public Use
  Company Number: 495662

PATIENT
  Age: 63 Year
  Sex: Male

DRUGS (5)
  1. NAPROXEN [Suspect]
     Indication: ARTHRALGIA
     Dosage: 500 MG DAILY ORAL
     Route: 048
  2. AMLODIPINE (AMLODIPINE BESYLATE) [Concomitant]
  3. DIAZEPAM [Concomitant]
  4. ULTRACET [Concomitant]
  5. CALCITRIOL [Concomitant]

REACTIONS (6)
  - DUODENAL ULCER [None]
  - EROSIVE DUODENITIS [None]
  - EROSIVE OESOPHAGITIS [None]
  - GASTRIC ULCER [None]
  - GASTRITIS EROSIVE [None]
  - OESOPHAGEAL ULCER [None]
